FAERS Safety Report 12505578 (Version 3)
Quarter: 2016Q3

REPORT INFORMATION
  Report Type: Spontaneous
  Country: IT (occurrence: IT)
  Receive Date: 20160628
  Receipt Date: 20160711
  Transmission Date: 20161109
  Serious: Yes (Hospitalization)
  Sender: FDA-Public Use
  Company Number: IT-PFIZER INC-2016302766

PATIENT
  Age: 71 Year
  Sex: Female
  Weight: 50 kg

DRUGS (6)
  1. CISPLATIN. [Suspect]
     Active Substance: CISPLATIN
     Indication: LUNG ADENOCARCINOMA METASTATIC
     Dosage: 90 MG, TOTAL
     Route: 042
     Dates: start: 20160523, end: 20160523
  2. DAPAROX /00830802/ [Concomitant]
     Active Substance: PAROXETINE HYDROCHLORIDE
     Dosage: 20 MG, UNK
  3. IVEMEND [Suspect]
     Active Substance: FOSAPREPITANT DIMEGLUMINE
     Indication: LUNG ADENOCARCINOMA METASTATIC
     Dosage: 150 MG, TOTAL
     Route: 042
     Dates: start: 20160523, end: 20160523
  4. VERAPAMIL HYDROCHLORIDE. [Concomitant]
     Active Substance: VERAPAMIL HYDROCHLORIDE
     Dosage: 240 MG, UNK
     Route: 048
  5. ASPIRINETTA [Concomitant]
     Active Substance: ASPIRIN
     Dosage: 100 MG, UNK
  6. GEMCITABINE HYDROCHLORIDE. [Suspect]
     Active Substance: GEMCITABINE HYDROCHLORIDE
     Indication: LUNG ADENOCARCINOMA METASTATIC
     Dosage: 1800 MG, TOTAL
     Route: 042
     Dates: start: 20160523, end: 20160523

REACTIONS (4)
  - Cardiac failure [Recovered/Resolved]
  - Oliguria [Recovered/Resolved]
  - Confusional state [Recovered/Resolved]
  - Respiratory failure [Recovered/Resolved]

NARRATIVE: CASE EVENT DATE: 20160524
